FAERS Safety Report 18270557 (Version 2)
Quarter: 2020Q4

REPORT INFORMATION
  Report Type: Spontaneous
  Country: JP (occurrence: JP)
  Receive Date: 20200915
  Receipt Date: 20201125
  Transmission Date: 20210113
  Serious: Yes (Hospitalization)
  Sender: FDA-Public Use
  Company Number: JP-ELI_LILLY_AND_COMPANY-JP202009003070

PATIENT
  Age: 56 Year
  Sex: Male

DRUGS (4)
  1. AZULFIDINE [Concomitant]
     Active Substance: SULFASALAZINE
     Dosage: UNK
     Dates: start: 20180510, end: 20200902
  2. OLUMIANT [Suspect]
     Active Substance: BARICITINIB
     Indication: RHEUMATOID ARTHRITIS
     Dosage: 4 MG, DAILY
     Route: 048
     Dates: start: 20200111, end: 20200815
  3. CARERAM [Concomitant]
     Active Substance: IGURATIMOD
     Dosage: UNK
     Dates: start: 20180802, end: 20200902
  4. METHOTREXATE. [Suspect]
     Active Substance: METHOTREXATE
     Indication: PRODUCT USED FOR UNKNOWN INDICATION
     Dosage: 16 MG, WEEKLY (1/W)
     Route: 065
     Dates: start: 20180607, end: 20200814

REACTIONS (1)
  - Pharyngeal abscess [Recovering/Resolving]

NARRATIVE: CASE EVENT DATE: 20200815
